FAERS Safety Report 24327462 (Version 1)
Quarter: 2024Q3

REPORT INFORMATION
  Report Type: Spontaneous
  Country: US (occurrence: None)
  Receive Date: 20240916
  Receipt Date: 20240916
  Transmission Date: 20241017
  Serious: No
  Sender: Public
  Company Number: None

PATIENT
  Age: 78 Year
  Sex: Male
  Weight: 90 kg

DRUGS (1)
  1. TAMSULOSIN [Suspect]
     Active Substance: TAMSULOSIN
     Indication: Prostatomegaly
     Dosage: FREQUENCY : DAILY;?
     Dates: start: 20220901, end: 20240901

REACTIONS (4)
  - Pemphigus [None]
  - Oral mucosal exfoliation [None]
  - Nikolsky^s sign [None]
  - Therapy interrupted [None]
